FAERS Safety Report 5876518-1 (Version None)
Quarter: 2008Q3

REPORT INFORMATION
  Report Type: 
  Country: None (occurrence: None)
  Receive Date: 20080910
  Receipt Date: 20080909
  Transmission Date: 20090109
  Serious: Yes (Hospitalization)
  Sender: FDA-Public Use
  Company Number: B0536332A

PATIENT
  Age: 43 Year
  Sex: Male
  Weight: 75 kg

DRUGS (7)
  1. ABACAVIR SULFATE/LAMIVUDINE [Suspect]
     Indication: HIV INFECTION
     Route: 048
     Dates: start: 20070201, end: 20080814
  2. DARUNAVIR [Suspect]
     Indication: HIV INFECTION
     Dosage: 1200MG PER DAY
     Dates: start: 20070601
  3. ENFUVIRTIDE [Suspect]
     Dosage: 180MG PER DAY
     Route: 058
     Dates: start: 20070601
  4. TENOFOVIR DISOPROXIL FUMARATE [Concomitant]
  5. RITONAVIR [Concomitant]
  6. CO-TRIMOXAZOLE [Concomitant]
  7. PROLEUKIN [Concomitant]

REACTIONS (2)
  - ACUTE MYOCARDIAL INFARCTION [None]
  - PYREXIA [None]
